FAERS Safety Report 8773725 (Version 1)
Quarter: 2012Q4

REPORT INFORMATION
  Report Type: Report from Study
  Country: GB (occurrence: KR)
  Receive Date: 20120907
  Receipt Date: 20120907
  Transmission Date: 20130627
  Serious: Yes (Death, Hospitalization)
  Sender: FDA-Public Use
  Company Number: GB-SANOFI-AVENTIS-2012SA053959

PATIENT
  Age: 57 Year
  Sex: Male
  Weight: 65.1 kg

DRUGS (10)
  1. DOCETAXEL [Suspect]
     Indication: MALIGNANT NEOPLASM OF STOMACH
     Dosage: form: vial
     Route: 042
     Dates: start: 20120507, end: 20120718
  2. BEVACIZUMAB [Suspect]
     Indication: MALIGNANT NEOPLASM OF STOMACH
     Dosage: form: vial
     Route: 042
     Dates: start: 20120507
  3. CISPLATIN [Suspect]
     Indication: MALIGNANT NEOPLASM OF STOMACH
     Dosage: form: vial
     Route: 042
     Dates: start: 20120507
  4. CAPECITABINE [Suspect]
     Indication: MALIGNANT NEOPLASM OF STOMACH
     Dosage: D1-D14
     Route: 048
     Dates: start: 20120507, end: 20120722
  5. METOCLOPRAMIDE HYDROCHLORIDE [Concomitant]
     Dates: start: 20120507, end: 20120810
  6. LOPERAMIDE OXIDE [Concomitant]
     Dates: start: 20120507, end: 20120810
  7. MEGESTROL [Concomitant]
     Dates: start: 20120507, end: 20120810
  8. APREPITANT [Concomitant]
     Dates: start: 20120507, end: 20120810
  9. MAGNESIUM OXIDE [Concomitant]
     Dates: start: 20120507, end: 20120810
  10. SODIUM BICARBONATE [Concomitant]
     Dates: start: 20120507, end: 20120810

REACTIONS (2)
  - Hepatic failure [Fatal]
  - Febrile neutropenia [Fatal]
